FAERS Safety Report 7319332-2 (Version None)
Quarter: 2011Q1

REPORT INFORMATION
  Report Type: 
  Country: None (occurrence: None)
  Receive Date: 20110228
  Receipt Date: 20100203
  Transmission Date: 20110831
  Serious: No
  Sender: FDA-Public Use
  Company Number: A0842818A

PATIENT
  Age: 18 Year
  Sex: Female

DRUGS (2)
  1. LAMICTAL [Suspect]
     Route: 048
     Dates: start: 20090201
  2. BIRTH CONTROL [Concomitant]

REACTIONS (2)
  - SKIN EXFOLIATION [None]
  - OEDEMA PERIPHERAL [None]
